FAERS Safety Report 23831814 (Version 3)
Quarter: 2024Q3

REPORT INFORMATION
  Report Type: Spontaneous
  Country: JP (occurrence: JP)
  Receive Date: 20240508
  Receipt Date: 20240715
  Transmission Date: 20241017
  Serious: Yes (Hospitalization)
  Sender: VIFOR
  Company Number: JP-KISSEI-PT20240250_P_1

PATIENT
  Age: 72 Year
  Sex: Male

DRUGS (9)
  1. VELPHORO [Suspect]
     Active Substance: SUCROFERRIC OXYHYDROXIDE
     Indication: Product used for unknown indication
     Route: 065
     Dates: start: 20191122
  2. KORSUVA [Suspect]
     Active Substance: DIFELIKEFALIN ACETATE
     Indication: Pruritus
     Route: 042
     Dates: start: 20240320, end: 20240403
  3. ALFACALCIDOL [Concomitant]
     Active Substance: ALFACALCIDOL
     Route: 065
  4. EVOCALCET [Concomitant]
     Active Substance: EVOCALCET
     Route: 065
  5. NESINA [Concomitant]
     Active Substance: ALOGLIPTIN BENZOATE
     Route: 065
  6. OLOPATADINE HYDROCHLORIDE [Concomitant]
     Active Substance: OLOPATADINE HYDROCHLORIDE
     Route: 065
  7. LANSOPRAZOLE [Concomitant]
     Active Substance: LANSOPRAZOLE
     Route: 065
  8. LOXOPROFEN SODIUM DIHYDRATE [Concomitant]
     Active Substance: LOXOPROFEN SODIUM DIHYDRATE
     Route: 065
  9. SENNOSIDES [Concomitant]
     Active Substance: SENNOSIDES
     Route: 065

REACTIONS (2)
  - Loss of personal independence in daily activities [Unknown]
  - Somnolence [Recovered/Resolved]

NARRATIVE: CASE EVENT DATE: 20240325
